FAERS Safety Report 4534343-8 (Version None)
Quarter: 2004Q4

REPORT INFORMATION
  Report Type: 
  Country: None (occurrence: None)
  Receive Date: 20041221
  Receipt Date: 20041221
  Transmission Date: 20050328
  Serious: No
  Sender: FDA-Public Use
  Company Number: None

PATIENT
  Age: 50 Year
  Sex: Female
  Weight: 83.9154 kg

DRUGS (2)
  1. TIMOLOL MALEATE [Suspect]
     Indication: GLAUCOMA
     Dosage: 1- DROP INTO RIGHT EYE IN MORNING
     Route: 047
     Dates: start: 20040617, end: 20040801
  2. TIMOLOL MALEATE [Suspect]
     Indication: OCULAR HYPERTENSION
     Dosage: 1- DROP INTO RIGHT EYE IN MORNING
     Route: 047
     Dates: start: 20040617, end: 20040801

REACTIONS (1)
  - EYE IRRITATION [None]
